FAERS Safety Report 16282283 (Version 1)
Quarter: 2019Q2

REPORT INFORMATION
  Report Type: Spontaneous
  Country: US (occurrence: US)
  Receive Date: 20190507
  Receipt Date: 20190507
  Transmission Date: 20190711
  Serious: Yes (Other)
  Sender: FDA-Public Use
  Company Number: US-PFIZER INC-2019189273

PATIENT
  Age: 58 Year
  Sex: Female
  Weight: 152.9 kg

DRUGS (5)
  1. OXYCODONE [Concomitant]
     Active Substance: OXYCODONE
     Indication: BREAKTHROUGH PAIN
     Dosage: UNK, AS NEEDED, (TAKE 1 OR 2 TABLETS EVERY 6 HOURS AS NEEDED )
  2. MORPHINE [Concomitant]
     Active Substance: MORPHINE
     Indication: SPINAL PAIN
     Dosage: 90 MG, DAILY, (TAKES 3 A DAY)
     Route: 048
  3. LYRICA [Suspect]
     Active Substance: PREGABALIN
     Indication: SPINAL CORD INJURY
  4. LIDODERM [Concomitant]
     Active Substance: LIDOCAINE
     Indication: BREAKTHROUGH PAIN
     Dosage: UNK, AS NEEDED (USE 1 OR 2 TO UPPER THIGHS ON FRONT) (700 MG (50 MG PER GRAM ADHESIVE)
     Dates: start: 1990
  5. LYRICA [Suspect]
     Active Substance: PREGABALIN
     Indication: NEURALGIA
     Dosage: 150 MG, 1X/DAY (TAKE TWO EVERY EVENING)
     Route: 048
     Dates: start: 1993

REACTIONS (8)
  - Intervertebral disc disorder [Unknown]
  - Condition aggravated [Unknown]
  - Body height decreased [Unknown]
  - Diabetic neuropathy [Unknown]
  - Diabetes mellitus [Unknown]
  - Spinal disorder [Unknown]
  - Drug ineffective [Unknown]
  - Somnolence [Unknown]

NARRATIVE: CASE EVENT DATE: 2005
